FAERS Safety Report 16442007 (Version 1)
Quarter: 2019Q2

REPORT INFORMATION
  Report Type: Spontaneous
  Country: SK (occurrence: SK)
  Receive Date: 20190617
  Receipt Date: 20190617
  Transmission Date: 20190711
  Serious: Yes (Other)
  Sender: FDA-Public Use
  Company Number: SK-CELGENEUS-SVK-20190601075

PATIENT
  Age: 46 Year
  Sex: Female

DRUGS (3)
  1. GEMCITABINE [Concomitant]
     Active Substance: GEMCITABINE\GEMCITABINE HYDROCHLORIDE
     Route: 065
     Dates: start: 20170809, end: 2018
  2. GEMCITABINE [Concomitant]
     Active Substance: GEMCITABINE\GEMCITABINE HYDROCHLORIDE
     Indication: ADENOCARCINOMA PANCREAS
     Route: 065
     Dates: start: 20170823, end: 2018
  3. ABRAXANE [Suspect]
     Active Substance: PACLITAXEL
     Indication: ADENOCARCINOMA PANCREAS
     Route: 041
     Dates: start: 20170823, end: 2018

REACTIONS (11)
  - Liver function test increased [Unknown]
  - Liver function test increased [Unknown]
  - Leukopenia [Unknown]
  - Disease progression [Unknown]
  - Leukopenia [Unknown]
  - Leukopenia [Unknown]
  - Pyrexia [Recovered/Resolved]
  - Leukopenia [Unknown]
  - Leukopenia [Unknown]
  - Leukopenia [Unknown]
  - Rash [Unknown]

NARRATIVE: CASE EVENT DATE: 20171113
